FAERS Safety Report 12556536 (Version 1)
Quarter: 2016Q3

REPORT INFORMATION
  Report Type: Spontaneous
  Country: ZA (occurrence: ZA)
  Receive Date: 20160714
  Receipt Date: 20160714
  Transmission Date: 20161109
  Serious: Yes (Other)
  Sender: FDA-Public Use
  Company Number: ZA-DRREDDYS-SAF/SAF/16/0081136

PATIENT
  Sex: Female

DRUGS (1)
  1. YELATE 60MG [Suspect]
     Active Substance: DULOXETINE HYDROCHLORIDE
     Indication: MAJOR DEPRESSION
     Route: 048
     Dates: start: 201601

REACTIONS (1)
  - Stevens-Johnson syndrome [Not Recovered/Not Resolved]
